FAERS Safety Report 4756298-3 (Version None)
Quarter: 2005Q3

REPORT INFORMATION
  Report Type: 
  Country: None (occurrence: None)
  Receive Date: 20050830
  Receipt Date: 20050524
  Transmission Date: 20060218
  Serious: No
  Sender: FDA-Public Use
  Company Number: US-GLAXOSMITHKLINE-A0559915A

PATIENT
  Age: 64 Year
  Sex: Female

DRUGS (5)
  1. WELLBUTRIN XL [Suspect]
     Dosage: 150MG PER DAY
     Route: 048
     Dates: start: 20050523
  2. NICOTINE PATCHES [Concomitant]
  3. DIOVAN [Concomitant]
  4. GLUCOPHAGE [Concomitant]
  5. VITAMINS [Concomitant]

REACTIONS (1)
  - INSOMNIA [None]
